FAERS Safety Report 18978146 (Version 3)
Quarter: 2021Q2

REPORT INFORMATION
  Report Type: Spontaneous
  Country: US (occurrence: US)
  Receive Date: 20210307
  Receipt Date: 20210415
  Transmission Date: 20210717
  Serious: No
  Sender: FDA-Public Use
  Company Number: US-ORGANON-2102USA004376

PATIENT
  Sex: Female
  Weight: 104.78 kg

DRUGS (1)
  1. NEXPLANON [Suspect]
     Active Substance: ETONOGESTREL
     Dosage: 1 ROD EVERY 3 YEARS, LEFT UPPER ARM (NON DOMINAT ARM)
     Route: 059
     Dates: start: 20190313, end: 202103

REACTIONS (2)
  - Device breakage [Recovered/Resolved]
  - No adverse event [Unknown]
